FAERS Safety Report 19012466 (Version 1)
Quarter: 2021Q1

REPORT INFORMATION
  Report Type: Spontaneous
  Country: US (occurrence: US)
  Receive Date: 20210316
  Receipt Date: 20210316
  Transmission Date: 20210420
  Serious: Yes (Death, Other)
  Sender: FDA-Public Use
  Company Number: US-AMGEN-USASP2021038301

PATIENT

DRUGS (4)
  1. DARATUMUMAB [Concomitant]
     Active Substance: DARATUMUMAB
     Indication: PLASMA CELL MYELOMA
     Dosage: UNK
  2. CARFILZOMIB [Suspect]
     Active Substance: CARFILZOMIB
     Indication: PLASMA CELL MYELOMA
     Dosage: UNK
     Route: 065
  3. DEXAMETHASONE. [Concomitant]
     Active Substance: DEXAMETHASONE
     Indication: PLASMA CELL MYELOMA
     Dosage: UNK MILLIGRAM
  4. POMALIDOMIDE [Concomitant]
     Active Substance: POMALIDOMIDE
     Indication: PLASMA CELL MYELOMA
     Dosage: UNK

REACTIONS (13)
  - Plasma cell myeloma [Unknown]
  - Lymphopenia [Unknown]
  - Respiratory tract infection [Unknown]
  - Cytopenia [Unknown]
  - Insomnia [Unknown]
  - Neutropenia [Unknown]
  - Diarrhoea [Unknown]
  - Off label use [Unknown]
  - Death [Fatal]
  - Febrile neutropenia [Unknown]
  - Fatigue [Unknown]
  - Therapy partial responder [Unknown]
  - Thrombosis [Unknown]
